FAERS Safety Report 20749940 (Version 3)
Quarter: 2022Q2

REPORT INFORMATION
  Report Type: Spontaneous
  Country: CA (occurrence: CA)
  Receive Date: 20220426
  Receipt Date: 20220609
  Transmission Date: 20220721
  Serious: Yes (Other)
  Sender: FDA-Public Use
  Company Number: CA-CELLTRION INC.-2020CA034347

PATIENT

DRUGS (13)
  1. INFLECTRA [Suspect]
     Active Substance: INFLIXIMAB-DYYB
     Indication: Ankylosing spondylitis
     Dosage: 400 MG EVERY 12 WEEKS
     Route: 042
     Dates: start: 20201215, end: 2021
  2. INFLECTRA [Suspect]
     Active Substance: INFLIXIMAB-DYYB
     Indication: Colitis ulcerative
     Dosage: 400 MG EVERY 12 WEEKS
     Route: 042
     Dates: start: 20201215, end: 2021
  3. INFLECTRA [Suspect]
     Active Substance: INFLIXIMAB-DYYB
     Dosage: 400 MG EVERY 8 WEEKS
     Route: 042
     Dates: start: 2021
  4. INFLECTRA [Suspect]
     Active Substance: INFLIXIMAB-DYYB
     Dosage: 400 MG EVERY 12 WEEKS
     Route: 042
     Dates: start: 20210309
  5. INFLECTRA [Suspect]
     Active Substance: INFLIXIMAB-DYYB
     Dosage: 400 MG EVERY 12 WEEKS
     Route: 042
     Dates: start: 20210512
  6. INFLECTRA [Suspect]
     Active Substance: INFLIXIMAB-DYYB
     Dosage: 400 MG EVERY 12 WEEKS
     Route: 042
     Dates: start: 20210629
  7. INFLECTRA [Suspect]
     Active Substance: INFLIXIMAB-DYYB
     Dosage: 400 MG EVERY 12 WEEKS
     Route: 042
     Dates: start: 20210824
  8. INFLECTRA [Suspect]
     Active Substance: INFLIXIMAB-DYYB
     Dosage: 400 MG EVERY 12 WEEKS
     Route: 042
     Dates: start: 20211019
  9. INFLECTRA [Suspect]
     Active Substance: INFLIXIMAB-DYYB
     Dosage: 400 MG EVERY 12 WEEKS
     Route: 042
     Dates: start: 20211213
  10. INFLECTRA [Suspect]
     Active Substance: INFLIXIMAB-DYYB
     Dosage: 400 MG EVERY 12 WEEKS
     Route: 042
     Dates: start: 20220207
  11. INFLECTRA [Suspect]
     Active Substance: INFLIXIMAB-DYYB
     Dosage: 400 MG EVERY 8 WEEKS
     Route: 042
     Dates: start: 20220425
  12. METHOTREXATE [Concomitant]
     Active Substance: METHOTREXATE
     Dosage: 5 MG, WEEKLY
     Route: 065
  13. MESALAMINE [Concomitant]
     Active Substance: MESALAMINE
     Dosage: 1.2 G, 2X/DAY
     Route: 065

REACTIONS (8)
  - Anal abscess [Recovered/Resolved]
  - Subcutaneous abscess [Recovering/Resolving]
  - Arthralgia [Not Recovered/Not Resolved]
  - Condition aggravated [Recovering/Resolving]
  - Inappropriate schedule of product administration [Unknown]
  - Off label use [Unknown]
  - Intentional product use issue [Unknown]
  - Off label use [Unknown]

NARRATIVE: CASE EVENT DATE: 20201215
